FAERS Safety Report 9619909 (Version 2)
Quarter: 2013Q4

REPORT INFORMATION
  Report Type: Spontaneous
  Country: US (occurrence: US)
  Receive Date: 20131014
  Receipt Date: 20131014
  Transmission Date: 20140711
  Serious: Yes (Other)
  Sender: FDA-Public Use
  Company Number: US-UCBSA-074355

PATIENT
  Age: 56 Year
  Sex: Female
  Weight: 50.8 kg

DRUGS (13)
  1. VIMPAT [Suspect]
     Indication: EPILEPSY
  2. VIMPAT [Suspect]
     Indication: CONVULSION
  3. VIMPAT [Suspect]
     Indication: EPILEPSY
     Dosage: 100 MG DAILY
  4. VIMPAT [Suspect]
     Indication: CONVULSION
     Dosage: 100 MG DAILY
  5. VIMPAT [Suspect]
     Indication: EPILEPSY
     Dosage: 150 MG DAILY
  6. VIMPAT [Suspect]
     Indication: CONVULSION
     Dosage: 150 MG DAILY
  7. VIMPAT [Suspect]
     Indication: EPILEPSY
     Dosage: 100 MG Q AM AND 100 Q PM
     Dates: start: 2011
  8. VIMPAT [Suspect]
     Indication: CONVULSION
     Dosage: 100 MG Q AM AND 100 Q PM
     Dates: start: 2011
  9. VIMPAT [Suspect]
     Indication: EPILEPSY
     Dosage: 100 MG Q AM AND 150 AT NIGHT
     Dates: start: 2011, end: 2011
  10. VIMPAT [Suspect]
     Indication: CONVULSION
     Dosage: 100 MG Q AM AND 150 AT NIGHT
     Dates: start: 2011, end: 2011
  11. VIMPAT [Suspect]
     Indication: EPILEPSY
     Dosage: RARELY TAKE EXTRA 50 MG TABLET.
  12. VIMPAT [Suspect]
     Indication: CONVULSION
     Dosage: RARELY TAKE EXTRA 50 MG TABLET.
  13. DIPHENHYDRAMINE [Concomitant]
     Indication: SLEEP DISORDER
     Dosage: UNKNOWN DOSE

REACTIONS (19)
  - Grand mal convulsion [Recovered/Resolved]
  - Somnolence [Not Recovered/Not Resolved]
  - Amnesia [Not Recovered/Not Resolved]
  - Mouth injury [Recovered/Resolved]
  - Petit mal epilepsy [Recovered/Resolved]
  - Local swelling [Recovered/Resolved]
  - Mood altered [Not Recovered/Not Resolved]
  - Contusion [Not Recovered/Not Resolved]
  - Nausea [Not Recovered/Not Resolved]
  - Dizziness [Recovered/Resolved]
  - Blood pressure increased [Recovered/Resolved]
  - Diplopia [Not Recovered/Not Resolved]
  - Extra dose administered [Unknown]
  - Vomiting [Unknown]
  - Balance disorder [Recovered/Resolved]
  - Fall [Recovered/Resolved]
  - Laceration [Recovered/Resolved]
  - Pollakiuria [Unknown]
  - Frequent bowel movements [Unknown]
